FAERS Safety Report 18267248 (Version 5)
Quarter: 2022Q1

REPORT INFORMATION
  Report Type: Report from Study
  Country: NL (occurrence: NL)
  Receive Date: 20200915
  Receipt Date: 20220126
  Transmission Date: 20220423
  Serious: Yes (Hospitalization)
  Sender: FDA-Public Use
  Company Number: NL-ABBVIE-18K-114-2385611-00

PATIENT
  Sex: Male
  Weight: 75 kg

DRUGS (9)
  1. CARBIDOPA\LEVODOPA [Suspect]
     Active Substance: CARBIDOPA\LEVODOPA
     Indication: Parkinson^s disease
     Dosage: MD: 11.5 ML, CD: 3.4 ML/H, ED: 2.0 ML?20 MG/ML 5 MG/ML
     Route: 050
     Dates: start: 20180524
  2. CARBIDOPA\LEVODOPA [Suspect]
     Active Substance: CARBIDOPA\LEVODOPA
     Dosage: 20 MG/ML 5 MG/ML?MD 11.5 ML, CD 3.2 ML/H, ED 2.0 ML
     Route: 050
  3. CARBIDOPA\LEVODOPA [Suspect]
     Active Substance: CARBIDOPA\LEVODOPA
     Dosage: MD 14.7 ML, CD 3.6 ML/H, ED 2.0 ML
     Route: 050
  4. CARBIDOPA\LEVODOPA [Suspect]
     Active Substance: CARBIDOPA\LEVODOPA
     Dosage: END: 2.0 ML, CND: 1.8 ML/H?CD: 3.7 ML/HR
     Route: 050
  5. CARBIDOPA\LEVODOPA [Suspect]
     Active Substance: CARBIDOPA\LEVODOPA
     Dosage: CD: 3.9 ML/H, CND: 2.0 ML/H
     Route: 050
     Dates: start: 20211108
  6. CLONAZEPAM [Concomitant]
     Active Substance: CLONAZEPAM
     Indication: Parkinson^s disease
  7. BENSERAZIDE HYDROCHLORIDE\LEVODOPA [Concomitant]
     Active Substance: BENSERAZIDE HYDROCHLORIDE\LEVODOPA
     Indication: Parkinson^s disease
     Dosage: 100/25 MILIGRAM
  8. NEUPRO [Concomitant]
     Active Substance: ROTIGOTINE
     Indication: Parkinson^s disease
     Dosage: NEUPROPLEISTER?8 MILLIGRAM PER HOUR
  9. BENSERAZIDE HYDROCHLORIDE\LEVODOPA [Concomitant]
     Active Substance: BENSERAZIDE HYDROCHLORIDE\LEVODOPA
     Indication: Parkinson^s disease
     Dosage: 100/25 MILIGRAM

REACTIONS (28)
  - Fall [Not Recovered/Not Resolved]
  - Nocturia [Not Recovered/Not Resolved]
  - Dyschezia [Not Recovered/Not Resolved]
  - Slow speech [Not Recovered/Not Resolved]
  - Muscle rigidity [Not Recovered/Not Resolved]
  - Muscle spasms [Not Recovered/Not Resolved]
  - Dystonia [Not Recovered/Not Resolved]
  - Gait disturbance [Not Recovered/Not Resolved]
  - Urinary incontinence [Not Recovered/Not Resolved]
  - Salivary hypersecretion [Not Recovered/Not Resolved]
  - Abnormal dreams [Not Recovered/Not Resolved]
  - Weight increased [Recovered/Resolved]
  - Weight increased [Not Recovered/Not Resolved]
  - Weight decreased [Recovered/Resolved]
  - Insomnia [Not Recovered/Not Resolved]
  - Dizziness [Not Recovered/Not Resolved]
  - Dyskinesia [Recovering/Resolving]
  - Orthostatic hypotension [Unknown]
  - On and off phenomenon [Recovering/Resolving]
  - Stoma site discharge [Not Recovered/Not Resolved]
  - Stoma site pain [Recovered/Resolved]
  - Stoma site inflammation [Recovered/Resolved]
  - Device occlusion [Recovered/Resolved]
  - Hallucination, visual [Not Recovered/Not Resolved]
  - Device difficult to use [Unknown]
  - Device issue [Unknown]
  - Mobility decreased [Not Recovered/Not Resolved]
  - Hallucination [Not Recovered/Not Resolved]

NARRATIVE: CASE EVENT DATE: 20180101
